FAERS Safety Report 17823024 (Version 1)
Quarter: 2020Q2

REPORT INFORMATION
  Report Type: Spontaneous
  Country: US (occurrence: US)
  Receive Date: 20200523
  Receipt Date: 20200523
  Transmission Date: 20200714
  Serious: No
  Sender: FDA-Public Use
  Company Number: None

PATIENT
  Age: 64 Year
  Sex: Female
  Weight: 104.2 kg

DRUGS (8)
  1. REMDESIVIR (5 MG/ML INJECTION CONCENTRATE) [Suspect]
     Active Substance: REMDESIVIR
     Indication: COVID-19
     Dosage: ?          OTHER FREQUENCY:ONCE;?
     Route: 042
     Dates: start: 20200516, end: 20200517
  2. CEFTRIAXONE 1 GM IVPB [Concomitant]
     Dates: start: 20200514, end: 20200518
  3. ZINC SULFATE 220 MG CAP [Concomitant]
     Dates: start: 20200515
  4. AZITHROMYCIN 500 MG IVPB [Concomitant]
     Dates: start: 20200513, end: 20200515
  5. BENZONATATE 100 MG CAP [Concomitant]
     Active Substance: BENZONATATE
     Dates: start: 20200515
  6. ENOXAPARIN INJ [Concomitant]
     Active Substance: ENOXAPARIN SODIUM
     Dates: start: 20200514, end: 20200519
  7. METHYLPREDNISOLONE 40 MG IV [Concomitant]
     Dates: start: 20200514
  8. ASCORBIC ACID 500 MG TAB [Concomitant]
     Dates: start: 20200515

REACTIONS (2)
  - Aspartate aminotransferase increased [None]
  - Alanine aminotransferase increased [None]

NARRATIVE: CASE EVENT DATE: 20200517
